FAERS Safety Report 6670785-2 (Version None)
Quarter: 2010Q2

REPORT INFORMATION
  Report Type: 
  Country: None (occurrence: None)
  Receive Date: 20100407
  Receipt Date: 20100407
  Transmission Date: 20101027
  Serious: Yes (Hospitalization)
  Sender: FDA-Public Use
  Company Number: PHHO2007PL09087

PATIENT
  Sex: Female
  Weight: 58 kg

DRUGS (4)
  1. ACLASTA/ZOLEDRONATE T29581+A+SOLINJ [Suspect]
     Indication: OSTEOPOROSIS POSTMENOPAUSAL
     Dosage: 5 MG ONCE A YEAR
     Route: 042
     Dates: start: 20050824
  2. CALCIUM [Concomitant]
     Indication: OSTEOPOROSIS POSTMENOPAUSAL
  3. VITAMIN D [Concomitant]
     Indication: OSTEOPOROSIS POSTMENOPAUSAL
  4. BETALOC [Concomitant]
     Indication: TACHYCARDIA PAROXYSMAL

REACTIONS (5)
  - CHEST DISCOMFORT [None]
  - CONCOMITANT DISEASE PROGRESSION [None]
  - HYPERTENSION [None]
  - HYPERTHYROIDISM [None]
  - TOXIC NODULAR GOITRE [None]
